FAERS Safety Report 4506461-1 (Version None)
Quarter: 2004Q4

REPORT INFORMATION
  Report Type: 
  Country: None (occurrence: None)
  Receive Date: 20041122
  Receipt Date: 20041109
  Transmission Date: 20050328
  Serious: Yes (Hospitalization)
  Sender: FDA-Public Use
  Company Number: EMADSS2003001873

PATIENT
  Sex: Female

DRUGS (9)
  1. REMICADE [Suspect]
     Route: 041
     Dates: start: 19991228
  2. REMICADE [Suspect]
     Indication: PSORIATIC ARTHROPATHY
     Route: 041
     Dates: start: 19991228
  3. ZOLOFT [Suspect]
     Route: 049
     Dates: start: 19991101, end: 20000430
  4. LOSEC [Suspect]
     Indication: DRUG USE FOR UNKNOWN INDICATION
     Route: 049
     Dates: start: 19991207, end: 20000507
  5. VIOXX [Suspect]
     Indication: PSORIATIC ARTHROPATHY
     Route: 049
     Dates: start: 19991207, end: 20000507
  6. METHOTREXATE [Suspect]
     Indication: PSORIATIC ARTHROPATHY
     Route: 049
  7. FOLACIN [Concomitant]
     Route: 065
  8. FOLACIN [Concomitant]
     Route: 065
  9. DAONIL [Concomitant]
     Route: 065

REACTIONS (6)
  - CHOLANGITIS ACUTE [None]
  - HEPATIC FIBROSIS [None]
  - HEPATIC STEATOSIS [None]
  - HEPATITIS [None]
  - HEPATOCELLULAR DAMAGE [None]
  - VASCULITIS [None]
